FAERS Safety Report 8314172 (Version 3)
Quarter: 2013Q1

REPORT INFORMATION
  Report Type: Report from Study
  Country: CN (occurrence: CN)
  Receive Date: 20111228
  Receipt Date: 20130207
  Transmission Date: 20140127
  Serious: Yes (Hospitalization)
  Sender: FDA-Public Use
  Company Number: CN-JNJFOC-20111208851

PATIENT
  Age: 20 Year
  Sex: Male
  Weight: 55 kg

DRUGS (13)
  1. PALIPERIDONE [Suspect]
     Indication: SCHIZOPHRENIA
     Route: 048
     Dates: start: 20111209, end: 20111219
  2. CLONAZEPAM [Concomitant]
     Indication: PSYCHOTIC DISORDER
     Dosage: 4 MG TWICE IN THE EVENING
     Route: 030
     Dates: start: 20111216
  3. CLONAZEPAM [Concomitant]
     Indication: PSYCHOTIC DISORDER
     Dosage: 20 MG STAT (IMMEDIATELY)
     Route: 030
     Dates: start: 20111217
  4. CLONAZEPAM [Concomitant]
     Indication: INSOMNIA
     Dosage: 4 MG ORALLY TWICE IN THE EVENING
     Route: 048
  5. CLONAZEPAM [Concomitant]
     Indication: INSOMNIA
     Route: 048
     Dates: start: 20111209
  6. CLONAZEPAM [Concomitant]
     Indication: INSOMNIA
     Route: 048
     Dates: start: 20111218
  7. CLONAZEPAM [Concomitant]
     Indication: PSYCHOTIC DISORDER
     Route: 048
     Dates: start: 20111218
  8. CLONAZEPAM [Concomitant]
     Indication: PSYCHOTIC DISORDER
     Route: 048
     Dates: start: 20111209
  9. CLONAZEPAM [Concomitant]
     Indication: PSYCHOTIC DISORDER
     Dosage: 4 MG ORALLY TWICE IN THE EVENING
     Route: 048
  10. BENZHEXOL [Concomitant]
     Indication: AKATHISIA
     Route: 048
     Dates: start: 20111216
  11. BENZHEXOL [Concomitant]
     Indication: AKATHISIA
     Route: 048
     Dates: start: 20111205, end: 20111206
  12. RISPERIDONE [Concomitant]
     Indication: PSYCHIATRIC SYMPTOM
     Route: 048
     Dates: start: 20111207, end: 20111207
  13. RISPERIDONE [Concomitant]
     Indication: PSYCHIATRIC SYMPTOM
     Route: 048
     Dates: start: 20111205, end: 20111206

REACTIONS (1)
  - Psychotic disorder [Recovered/Resolved]
